FAERS Safety Report 12387360 (Version 1)
Quarter: 2016Q2

REPORT INFORMATION
  Report Type: Spontaneous
  Country: FR (occurrence: FR)
  Receive Date: 20160519
  Receipt Date: 20160519
  Transmission Date: 20160815
  Serious: Yes (Hospitalization)
  Sender: FDA-Public Use
  Company Number: FR-ASTRAZENECA-2016SE53399

PATIENT
  Age: 20240 Day
  Sex: Male

DRUGS (5)
  1. GENTAMICINE [Suspect]
     Active Substance: GENTAMICIN
     Indication: SEPTIC SHOCK
     Route: 042
     Dates: start: 20130912, end: 20130914
  2. MERONEM [Suspect]
     Active Substance: MEROPENEM
     Indication: SEPTIC SHOCK
     Route: 042
     Dates: start: 20130908, end: 20130919
  3. VANCOMYCIN [Suspect]
     Active Substance: VANCOMYCIN
     Indication: SEPTIC SHOCK
     Route: 042
     Dates: start: 20130904, end: 20130914
  4. DALACINE [Suspect]
     Active Substance: CLINDAMYCIN HYDROCHLORIDE
     Indication: SEPTIC SHOCK
     Route: 042
     Dates: start: 20130907, end: 20130921
  5. GENTAMICINE [Suspect]
     Active Substance: GENTAMICIN
     Indication: SEPTIC SHOCK
     Route: 042
     Dates: start: 20130919, end: 20130919

REACTIONS (8)
  - Eosinophilia [Recovered/Resolved]
  - Aspergillus test positive [Unknown]
  - Pseudomonas test positive [Unknown]
  - Dermatitis [Unknown]
  - Toxic skin eruption [Unknown]
  - Rash macular [Recovered/Resolved]
  - Staphylococcus test positive [Unknown]
  - Pyrexia [Unknown]

NARRATIVE: CASE EVENT DATE: 20130914
